FAERS Safety Report 23123458 (Version 3)
Quarter: 2024Q1

REPORT INFORMATION
  Report Type: Other
  Country: PT (occurrence: None)
  Receive Date: 20231030
  Receipt Date: 20240120
  Transmission Date: 20240409
  Serious: Yes (Death)
  Sender: FDA-Public Use
  Company Number: PT-ROCHE-3447057

PATIENT
  Age: 57 Year
  Sex: Female

DRUGS (23)
  1. HERCEPTIN [Suspect]
     Active Substance: TRASTUZUMAB
     Indication: HER2 positive breast cancer
     Route: 058
     Dates: start: 20181031, end: 20191024
  2. FEMARA [Suspect]
     Active Substance: LETROZOLE
     Indication: HER2 positive breast cancer
     Route: 048
     Dates: start: 20181031, end: 20201110
  3. ATORVASTATIN [Concomitant]
     Active Substance: ATORVASTATIN
     Dates: end: 20200615
  4. BUDESONIDE [Concomitant]
     Active Substance: BUDESONIDE
     Dates: end: 20200615
  5. FORMOTEROL [Concomitant]
     Active Substance: FORMOTEROL
     Dates: end: 20200615
  6. INSULIN HUMAN [Concomitant]
     Active Substance: INSULIN HUMAN
     Dosage: 22 UNITS
     Dates: end: 20200615
  7. PANTOPRAZOLE [Concomitant]
     Active Substance: PANTOPRAZOLE
     Dosage: PR (PER RECTUM)
     Dates: end: 20200615
  8. WARFARIN SODIUM [Concomitant]
     Active Substance: WARFARIN SODIUM
     Dates: end: 20200615
  9. ENALAPRIL [Concomitant]
     Active Substance: ENALAPRIL
     Dates: start: 20181016, end: 20200615
  10. CALCIUM [Concomitant]
     Active Substance: CALCIUM
     Route: 048
     Dates: start: 20181031, end: 20200615
  11. MAGNESIUM [Concomitant]
     Active Substance: MAGNESIUM
     Dates: start: 20200220, end: 20200615
  12. CLEMASTINE [Concomitant]
     Active Substance: CLEMASTINE
     Route: 042
     Dates: start: 20181031, end: 20191024
  13. METHYLPREDNISOLONE [Concomitant]
     Active Substance: METHYLPREDNISOLONE
     Route: 042
     Dates: start: 20181031, end: 20191024
  14. MIDAZOLAM [Concomitant]
     Active Substance: MIDAZOLAM
     Indication: Anaesthesia
     Route: 030
     Dates: start: 20190607, end: 20190607
  15. FENTANYL [Concomitant]
     Active Substance: FENTANYL\FENTANYL CITRATE
     Indication: Anaesthesia
     Dosage: 0.20
     Dates: start: 20190607, end: 20190607
  16. PROPOFOL [Concomitant]
     Active Substance: PROPOFOL
     Indication: Anaesthesia
     Dates: start: 20190607, end: 20190607
  17. ROCURONIUM [Concomitant]
     Active Substance: ROCURONIUM BROMIDE
     Indication: Anaesthesia
     Dates: start: 20190607, end: 20190607
  18. DEXAMETHASONE [Concomitant]
     Active Substance: DEXAMETHASONE
     Indication: Anaesthesia
     Dates: start: 20190607, end: 20190607
  19. ACETAMINOPHEN [Concomitant]
     Active Substance: ACETAMINOPHEN
     Indication: Anaesthesia
     Dates: start: 20190607, end: 20190607
  20. PARECOXIB [Concomitant]
     Active Substance: PARECOXIB
     Dates: start: 20190607, end: 20190607
  21. ONDANSETRON [Concomitant]
     Active Substance: ONDANSETRON
     Indication: Anaesthesia
     Dates: start: 20190607, end: 20190607
  22. SUGAMMADEX [Concomitant]
     Active Substance: SUGAMMADEX
     Indication: Anaesthesia
     Dates: start: 20190607, end: 20190607
  23. MAGNESIUM [Concomitant]
     Active Substance: MAGNESIUM
     Indication: Hypomagnesaemia
     Dates: start: 20200220, end: 2020

REACTIONS (1)
  - Pancreatic carcinoma [Fatal]

NARRATIVE: CASE EVENT DATE: 20200615
